FAERS Safety Report 12954260 (Version 4)
Quarter: 2017Q1

REPORT INFORMATION
  Report Type: Report from Study
  Country: US (occurrence: US)
  Receive Date: 20161118
  Receipt Date: 20170210
  Transmission Date: 20170428
  Serious: Yes (Other)
  Sender: FDA-Public Use
  Company Number: US-009507513-1611USA007880

PATIENT
  Age: 70 Year
  Sex: Female
  Weight: 61.22 kg

DRUGS (1)
  1. KEYTRUDA [Suspect]
     Active Substance: PEMBROLIZUMAB
     Indication: SALIVARY GLAND CANCER
     Dosage: 200 MG, EVERY 3 WEEKS
     Route: 042
     Dates: start: 20160809, end: 20161114

REACTIONS (1)
  - Malignant neoplasm progression [Unknown]

NARRATIVE: CASE EVENT DATE: 20161114
